FAERS Safety Report 9469473 (Version 2)
Quarter: 2013Q3

REPORT INFORMATION
  Report Type: Spontaneous
  Country: US (occurrence: US)
  Receive Date: 20130822
  Receipt Date: 20130828
  Transmission Date: 20140515
  Serious: No
  Sender: FDA-Public Use
  Company Number: US-009507513-1308USA008510

PATIENT
  Sex: Female
  Weight: 63.49 kg

DRUGS (4)
  1. FOSAMAX [Suspect]
     Route: 048
  2. FOSAMAX [Suspect]
     Dosage: UNK, QW
     Route: 048
     Dates: start: 20130708
  3. RED YEAST [Concomitant]
     Indication: PROMOTION OF PERIPHERAL CIRCULATION
     Dosage: 2 DF, QD
     Route: 048
  4. CALCIUM (UNSPECIFIED) [Concomitant]
     Dosage: 1200 MG DAILY

REACTIONS (3)
  - Feeling abnormal [Unknown]
  - Malaise [Unknown]
  - Nausea [Unknown]
